FAERS Safety Report 7899515-3 (Version None)
Quarter: 2011Q4

REPORT INFORMATION
  Report Type: 
  Country: None (occurrence: None)
  Receive Date: 20111107
  Receipt Date: 20110915
  Transmission Date: 20120403
  Serious: No
  Sender: FDA-Public Use
  Company Number: US-AMGEN-USASP2011047554

PATIENT
  Age: 58 Year
  Sex: Female

DRUGS (13)
  1. ASPIRIN [Concomitant]
     Dosage: 81 MG, UNK
  2. VICODIN [Concomitant]
     Dosage: 500 MG, UNK
  3. CARVEDILOL [Concomitant]
     Dosage: 12.5 MG, UNK
  4. ARAVA [Concomitant]
     Dosage: 10 MG, UNK
  5. PANTOPRAZOLE [Concomitant]
     Dosage: 40 MG, UNK
  6. ENBREL [Suspect]
     Indication: RHEUMATOID ARTHRITIS
     Dosage: 50 MG, QWK
     Route: 058
  7. CALCIUM PLUS D3 [Concomitant]
  8. LEFLUNOMIDE [Concomitant]
     Dosage: 20 MG, UNK
  9. CYMBALTA [Concomitant]
     Dosage: 20 MG, UNK
  10. FOLIC ACID [Concomitant]
     Dosage: 1 MG, UNK
  11. LISINOPRIL ACCORD [Concomitant]
     Dosage: 10 MG, UNK
  12. GABAPENTIN [Concomitant]
     Dosage: 100 MG, UNK
  13. BLACK COHOSH                       /01456805/ [Concomitant]
     Dosage: 40 MG, UNK

REACTIONS (5)
  - UPPER RESPIRATORY TRACT INFECTION [None]
  - INJECTION SITE PRURITUS [None]
  - INJECTION SITE SWELLING [None]
  - INJECTION SITE REACTION [None]
  - INJECTION SITE ERYTHEMA [None]
